FAERS Safety Report 25858069 (Version 1)
Quarter: 2025Q3

REPORT INFORMATION
  Report Type: Spontaneous
  Country: US (occurrence: US)
  Receive Date: 20250929
  Receipt Date: 20250929
  Transmission Date: 20251020
  Serious: Yes (Other)
  Sender: COOPERSURGICAL
  Company Number: US-COOPERSURGICAL, INC.-2025CPS006888

PATIENT
  Sex: Female
  Weight: 56.689 kg

DRUGS (1)
  1. PARAGARD T 380A [Suspect]
     Active Substance: COPPER
     Indication: Contraception
     Route: 015
     Dates: start: 20150424

REACTIONS (14)
  - Surgery [Recovered/Resolved]
  - Device breakage [Recovered/Resolved]
  - Foreign body in reproductive tract [Recovered/Resolved]
  - Complication of device removal [Recovered/Resolved]
  - Embedded device [Recovered/Resolved]
  - Sensation of foreign body [Recovered/Resolved]
  - Loss of libido [Unknown]
  - Emotional distress [Unknown]
  - Vaginal discharge [Unknown]
  - Abdominal pain [Recovered/Resolved]
  - Heavy menstrual bleeding [Unknown]
  - Abnormal uterine bleeding [Unknown]
  - Pelvic pain [Recovered/Resolved]
  - Device dislocation [Recovered/Resolved]

NARRATIVE: CASE EVENT DATE: 20150101
